FAERS Safety Report 6083346-3 (Version None)
Quarter: 2009Q1

REPORT INFORMATION
  Report Type: 
  Country: None (occurrence: None)
  Receive Date: 20090213
  Receipt Date: 20090213
  Transmission Date: 20090719
  Serious: Yes (Other)
  Sender: FDA-Public Use
  Company Number: None

PATIENT
  Age: 82 Year
  Sex: Male
  Weight: 59.8748 kg

DRUGS (1)
  1. FORTEO [Suspect]
     Indication: OSTEOPOROSIS
     Dosage: 20MCG EVERY DAY SQ
     Dates: start: 20080815, end: 20090211

REACTIONS (2)
  - HYPERSENSITIVITY [None]
  - MUSCLE SPASMS [None]
